FAERS Safety Report 7314902-X (Version None)
Quarter: 2011Q1

REPORT INFORMATION
  Report Type: 
  Country: None (occurrence: None)
  Receive Date: 20110225
  Receipt Date: 20100126
  Transmission Date: 20110831
  Serious: No
  Sender: FDA-Public Use
  Company Number: US-MYLANLABS-2010S1001229

PATIENT
  Age: 16 Year
  Sex: Female

DRUGS (8)
  1. AMNESTEEM [Suspect]
     Indication: ACNE
     Route: 048
     Dates: end: 20100121
  2. SOTRET [Suspect]
     Indication: ACNE
  3. CLARAVIS [Suspect]
     Indication: ACNE
  4. SINGULAIR [Concomitant]
     Indication: ASTHMA
  5. DERMA-SMOOTHE/FS [Concomitant]
     Indication: ECZEMA
  6. NASACORT [Concomitant]
     Indication: ASTHMA
  7. ADVAIR DISKUS 100/50 [Concomitant]
     Indication: ASTHMA
  8. CLARAVIS [Suspect]

REACTIONS (2)
  - LEUKOPENIA [None]
  - NEUTROPENIA [None]
